FAERS Safety Report 4915724-7 (Version None)
Quarter: 2006Q1

REPORT INFORMATION
  Report Type: 
  Country: None (occurrence: None)
  Receive Date: 20060217
  Receipt Date: 20060203
  Transmission Date: 20060701
  Serious: Yes (Hospitalization)
  Sender: FDA-Public Use
  Company Number: US-JNJFOC-20060201189

PATIENT
  Age: 36 Year
  Sex: Female

DRUGS (3)
  1. IBUPROFEN [Suspect]
  2. IBUPROFEN [Suspect]
  3. IBUPROFEN [Suspect]

REACTIONS (2)
  - HYPERSENSITIVITY [None]
  - PYREXIA [None]
